FAERS Safety Report 6661481-6 (Version None)
Quarter: 2010Q1

REPORT INFORMATION
  Report Type: 
  Country: None (occurrence: None)
  Receive Date: 20100331
  Receipt Date: 20100322
  Transmission Date: 20100710
  Serious: Yes (Other)
  Sender: FDA-Public Use
  Company Number: BR-PFIZER INC-2010036382

PATIENT
  Age: 51 Year
  Sex: Male
  Weight: 94.785 kg

DRUGS (1)
  1. LIPITOR [Suspect]
     Indication: BLOOD CHOLESTEROL INCREASED
     Dosage: UNK, 1/2 TABLET ALTERNATE DAY
     Route: 048
     Dates: start: 20100101, end: 20100319

REACTIONS (6)
  - DIZZINESS [None]
  - FEELING OF DESPAIR [None]
  - MEMORY IMPAIRMENT [None]
  - MUSCLE DISORDER [None]
  - SUICIDAL IDEATION [None]
  - TINNITUS [None]
